FAERS Safety Report 8208770 (Version 2)
Quarter: 2013Q2

REPORT INFORMATION
  Report Type: Spontaneous
  Country: US (occurrence: None)
  Receive Date: 20110916
  Receipt Date: 20120917
  Transmission Date: 20140414
  Serious: Yes (Hospitalization)
  Sender: FDA-Public Use
  Company Number: 2011SP022118

PATIENT
  Age: 22 Year
  Sex: Female

DRUGS (1)
  1. IMPLANON [Suspect]
     Indication: CONTRACEPTION
     Route: 050
     Dates: start: 20110415, end: 20110511

REACTIONS (5)
  - IMPLANT SITE RASH [None]
  - IMPLANT SITE HYPERSENSITIVITY [None]
  - Application site pallor [None]
  - Implant site pruritus [None]
  - Implant site erythema [None]
